FAERS Safety Report 21705032 (Version 4)
Quarter: 2022Q4

REPORT INFORMATION
  Report Type: Spontaneous
  Country: US (occurrence: US)
  Receive Date: 20221209
  Receipt Date: 20221215
  Transmission Date: 20230112
  Serious: Yes (Other)
  Sender: FDA-Public Use
  Company Number: US-SANOFI-01395729

PATIENT
  Age: 81 Year
  Sex: Female

DRUGS (6)
  1. XYZAL ALLERGY 24HR [Suspect]
     Active Substance: LEVOCETIRIZINE DIHYDROCHLORIDE
     Dosage: UNK
  2. MELATONIN [Concomitant]
     Active Substance: MELATONIN
     Dosage: UNK
  3. MELATONIN [Concomitant]
     Active Substance: MELATONIN
     Dosage: 10 MG
  4. TYLENOL [Concomitant]
     Active Substance: ACETAMINOPHEN
     Dosage: UNK
  5. TYLENOL [Concomitant]
     Active Substance: ACETAMINOPHEN
  6. TYLENOL [Concomitant]
     Active Substance: ACETAMINOPHEN
     Dosage: 10MG

REACTIONS (4)
  - Urinary tract disorder [Unknown]
  - Urinary retention [Unknown]
  - Head discomfort [Unknown]
  - Diarrhoea [Unknown]
